FAERS Safety Report 7550388-8 (Version None)
Quarter: 2011Q2

REPORT INFORMATION
  Report Type: 
  Country: None (occurrence: None)
  Receive Date: 20110615
  Receipt Date: 20110609
  Transmission Date: 20111010
  Serious: Yes (Hospitalization)
  Sender: FDA-Public Use
  Company Number: BR-AMGEN-BRACT2011029982

PATIENT
  Age: 22 Year
  Sex: Male

DRUGS (6)
  1. CINACALCET HYDROCHLORIDE [Suspect]
     Indication: HYPERPARATHYROIDISM SECONDARY
     Dates: start: 20071106, end: 20110605
  2. LOSARTAN POTASSIUM [Concomitant]
     Dosage: 50 MG, BID
     Route: 048
     Dates: start: 20091211
  3. ATENOLOL [Concomitant]
     Dosage: 50 MG, BID
     Route: 048
     Dates: start: 20090102
  4. RANITIDINE [Concomitant]
     Dosage: 150 MG, QD
     Route: 048
     Dates: start: 20100308
  5. PLACEBO [Suspect]
     Indication: HYPERPARATHYROIDISM SECONDARY
     Dates: start: 20071106, end: 20110605
  6. SEVELAMER [Concomitant]
     Dosage: 6400 MG, QD
     Route: 048
     Dates: start: 20100318

REACTIONS (2)
  - HYPERPARATHYROIDISM SECONDARY [None]
  - CONDITION AGGRAVATED [None]
